FAERS Safety Report 19597195 (Version 1)
Quarter: 2021Q3

REPORT INFORMATION
  Report Type: Spontaneous
  Country: US (occurrence: US)
  Receive Date: 20210723
  Receipt Date: 20210723
  Transmission Date: 20211014
  Serious: Yes (Hospitalization)
  Sender: FDA-Public Use
  Company Number: US-STRIDES ARCOLAB LIMITED-2020SP011172

PATIENT
  Age: 35 Year
  Sex: Female

DRUGS (14)
  1. PROGESTERONE. [Suspect]
     Active Substance: PROGESTERONE
     Dosage: 50 MILLIGRAM, PER DAY
     Route: 030
  2. SOLU?MEDROL [Suspect]
     Active Substance: METHYLPREDNISOLONE SODIUM SUCCINATE
     Dosage: SOME INSTANCES, RECEIVED PULSE THERAPY
     Route: 065
  3. SOLU?MEDROL [Suspect]
     Active Substance: METHYLPREDNISOLONE SODIUM SUCCINATE
     Indication: UTERINE OPERATION
     Dosage: 1 GRAM, UNK
     Route: 042
  4. ANTITHYMOCYTE IMMUNOGLOBULIN [Concomitant]
     Active Substance: THYMOCYTE IMMUNE GLOBULIN NOS
     Indication: UTERINE OPERATION
     Dosage: 1 MG/KG/DAY
     Route: 065
  5. ACYCLOVIR [ACICLOVIR] [Concomitant]
     Active Substance: ACYCLOVIR
     Indication: UTERINE OPERATION
     Dosage: UNK
     Route: 065
  6. TACROLIMUS. [Suspect]
     Active Substance: TACROLIMUS
     Indication: UTERINE OPERATION
     Dosage: 1000 MILLIGRAM, BID
     Route: 048
  7. MYCOPHENOLATE MOFETIL. [Suspect]
     Active Substance: MYCOPHENOLATE MOFETIL
     Indication: UTERINE OPERATION
     Dosage: UNK
     Route: 065
  8. AZATHIOPRINE. [Suspect]
     Active Substance: AZATHIOPRINE
     Indication: UTERINE OPERATION
     Dosage: 75 MILLIGRAM, PER DAY
     Route: 065
  9. PREDNISOLONE. [Suspect]
     Active Substance: PREDNISOLONE
     Indication: UTERINE OPERATION
     Dosage: 20 MILLIGRAM, PER DAY
     Route: 048
  10. ESTRADIOL. [Suspect]
     Active Substance: ESTRADIOL
     Indication: IN VITRO FERTILISATION
     Dosage: 6 MILLIGRAM, PER DAY
     Route: 048
  11. ESTRADIOL. [Suspect]
     Active Substance: ESTRADIOL
     Dosage: 4 MILLIGRAM, BID
     Route: 048
  12. INSULIN [Suspect]
     Active Substance: INSULIN NOS
     Indication: BLOOD GLUCOSE ABNORMAL
     Dosage: UNK
     Route: 065
  13. PROGESTERONE. [Suspect]
     Active Substance: PROGESTERONE
     Indication: PLACENTA PRAEVIA
     Dosage: 200 MILLIGRAM, PER DAY
     Route: 067
  14. TACROLIMUS. [Suspect]
     Active Substance: TACROLIMUS
     Dosage: DOSE INCREASED
     Route: 048

REACTIONS (4)
  - Blood creatinine increased [Recovered/Resolved]
  - Off label use [Unknown]
  - Transplant rejection [Unknown]
  - Maternal exposure during pregnancy [Unknown]
